FAERS Safety Report 13587854 (Version 2)
Quarter: 2017Q2

REPORT INFORMATION
  Report Type: Report from Study
  Country: None (occurrence: NL)
  Receive Date: 20170527
  Receipt Date: 20170629
  Transmission Date: 20170830
  Serious: Yes (Hospitalization, Other)
  Sender: FDA-Public Use
  Company Number: NL-ABBVIE-17P-114-1973894-00

PATIENT
  Sex: Male

DRUGS (1)
  1. DUODOPA [Suspect]
     Active Substance: CARBIDOPA\LEVODOPA
     Indication: PARKINSON^S DISEASE
     Dosage: MD: 8, CD: 4, ED: 1
     Route: 050
     Dates: start: 20130903

REACTIONS (7)
  - Stoma site extravasation [Not Recovered/Not Resolved]
  - Muscle rigidity [Not Recovered/Not Resolved]
  - Stoma site erythema [Not Recovered/Not Resolved]
  - Confusional state [Not Recovered/Not Resolved]
  - Fistula [Not Recovered/Not Resolved]
  - Stoma site abscess [Not Recovered/Not Resolved]
  - Stoma site discharge [Not Recovered/Not Resolved]
